FAERS Safety Report 13101099 (Version 1)
Quarter: 2017Q1

REPORT INFORMATION
  Report Type: Spontaneous
  Country: US (occurrence: US)
  Receive Date: 20170110
  Receipt Date: 20170110
  Transmission Date: 20170428
  Serious: Yes (Other)
  Sender: FDA-Public Use
  Company Number: None

PATIENT
  Age: 14 Year
  Sex: Female
  Weight: 72.9 kg

DRUGS (9)
  1. ALVESCO [Concomitant]
     Active Substance: CICLESONIDE
  2. LOVENOX [Concomitant]
     Active Substance: ENOXAPARIN SODIUM
  3. XOPENEX [Concomitant]
     Active Substance: LEVALBUTEROL HYDROCHLORIDE
  4. ENOXOPARIN SODIUM INJECTION WINHROP [Suspect]
     Active Substance: ENOXAPARIN SODIUM
     Indication: AXILLARY VEIN THROMBOSIS
     Dosage: ?          QUANTITY:50 INJECTION(S);?
     Route: 058
     Dates: start: 20160709, end: 20170110
  5. OMEPRAZOLE. [Concomitant]
     Active Substance: OMEPRAZOLE
  6. MULTIVITAMIN [Concomitant]
     Active Substance: VITAMINS
  7. ENOXOPARIN SODIUM INJECTION WINHROP [Suspect]
     Active Substance: ENOXAPARIN SODIUM
     Indication: SUBCLAVIAN VEIN THROMBOSIS
     Dosage: ?          QUANTITY:50 INJECTION(S);?
     Route: 058
     Dates: start: 20160709, end: 20170110
  8. SINGULAIR [Concomitant]
     Active Substance: MONTELUKAST SODIUM
  9. FLONASE [Concomitant]
     Active Substance: FLUTICASONE PROPIONATE

REACTIONS (1)
  - Alopecia [None]

NARRATIVE: CASE EVENT DATE: 20161101
